FAERS Safety Report 25299182 (Version 1)
Quarter: 2025Q2

REPORT INFORMATION
  Report Type: Spontaneous
  Country: DE (occurrence: DE)
  Receive Date: 20250512
  Receipt Date: 20250512
  Transmission Date: 20250717
  Serious: Yes (Death, Hospitalization, Other)
  Sender: AUROBINDO
  Company Number: DE-AstraZeneca-2024A210076

PATIENT
  Age: 66 Year
  Sex: Female
  Weight: 66 kg

DRUGS (6)
  1. CARBOPLATIN [Suspect]
     Active Substance: CARBOPLATIN
     Indication: Product used for unknown indication
     Route: 065
  2. PEMETREXED DISODIUM [Suspect]
     Active Substance: PEMETREXED DISODIUM
     Indication: Non-small cell lung cancer
     Route: 065
  3. DURVALUMAB [Suspect]
     Active Substance: DURVALUMAB
     Indication: Non-small cell lung cancer metastatic
     Route: 042
     Dates: start: 20240808
  4. TREMELIMUMAB [Suspect]
     Active Substance: TREMELIMUMAB
     Indication: Non-small cell lung cancer metastatic
     Route: 042
     Dates: start: 20240808
  5. TORSEMIDE [Concomitant]
     Active Substance: TORSEMIDE
     Indication: Product used for unknown indication
     Route: 065
  6. CARVEDILOL [Concomitant]
     Active Substance: CARVEDILOL
     Indication: Product used for unknown indication
     Route: 065

REACTIONS (1)
  - Neutropenic sepsis [Fatal]

NARRATIVE: CASE EVENT DATE: 20240912
